FAERS Safety Report 11829754 (Version 1)
Quarter: 2015Q4

REPORT INFORMATION
  Report Type: Spontaneous
  Country: JP (occurrence: JP)
  Receive Date: 20151212
  Receipt Date: 20151212
  Transmission Date: 20160305
  Serious: Yes (Hospitalization)
  Sender: FDA-Public Use
  Company Number: JP-ASTRAZENECA-2015SF22914

PATIENT
  Age: 80 Year
  Sex: Male
  Weight: 45 kg

DRUGS (9)
  1. PROMAC [Concomitant]
     Active Substance: NITROFURANTOIN
     Route: 048
  2. GENINAX [Concomitant]
     Active Substance: GARENOXACIN MESYLATE
     Dosage: DOSE UNKNOWN
     Route: 048
  3. IRESSA [Suspect]
     Active Substance: GEFITINIB
     Indication: LUNG NEOPLASM MALIGNANT
     Route: 048
     Dates: start: 20150501, end: 20150819
  4. CLARITH [Concomitant]
     Active Substance: CLARITHROMYCIN
     Dosage: DOSE UNKNOWN
     Route: 048
  5. GASMOTIN [Concomitant]
     Active Substance: MOSAPRIDE CITRATE
     Dosage: DOSE UNKNOWN
     Route: 048
  6. GRAMALIL [Concomitant]
     Active Substance: TIAPRIDE HYDROCHLORIDE
     Dosage: DOSE UNKNOWN
     Route: 048
  7. MUCOSOLVAN L [Concomitant]
     Active Substance: AMBROXOL HYDROCHLORIDE
     Dosage: DOSE UNKNOWN
     Route: 048
  8. ATMIPHEN [Concomitant]
     Dosage: DOSE UNKNOWN
     Route: 048
  9. NEXIUM [Concomitant]
     Active Substance: ESOMEPRAZOLE MAGNESIUM
     Dosage: DOSE UNKNOWN
     Route: 048

REACTIONS (1)
  - Lung disorder [Unknown]

NARRATIVE: CASE EVENT DATE: 20150813
